FAERS Safety Report 17690200 (Version 1)
Quarter: 2020Q2

REPORT INFORMATION
  Report Type: Spontaneous
  Country: US (occurrence: US)
  Receive Date: 20200421
  Receipt Date: 20200421
  Transmission Date: 20200714
  Serious: Yes (Other)
  Sender: FDA-Public Use
  Company Number: US-ABBVIE-20K-163-3369761-00

PATIENT
  Age: 43 Year
  Sex: Female

DRUGS (3)
  1. PREMARIN [Suspect]
     Active Substance: ESTROGENS, CONJUGATED
     Indication: PRODUCT USED FOR UNKNOWN INDICATION
     Dosage: VAGINAL CREAM
     Route: 065
  2. LEVOXYL [Suspect]
     Active Substance: LEVOTHYROXINE SODIUM
     Indication: THYROIDECTOMY
     Dosage: BY MOUTH
     Route: 048
     Dates: start: 1982
  3. SYNTHROID [Suspect]
     Active Substance: LEVOTHYROXINE SODIUM
     Indication: THYROIDECTOMY
     Route: 048
     Dates: start: 1983

REACTIONS (12)
  - Cervix carcinoma [Recovered/Resolved]
  - Drug ineffective [Recovered/Resolved]
  - Impaired work ability [Unknown]
  - Malaise [Unknown]
  - Hysterectomy [Unknown]
  - Decreased activity [Recovered/Resolved]
  - Malabsorption from administration site [Unknown]
  - Feeling abnormal [Not Recovered/Not Resolved]
  - Migraine [Unknown]
  - Feeling abnormal [Unknown]
  - Skin mass [Recovered/Resolved]
  - Head discomfort [Unknown]

NARRATIVE: CASE EVENT DATE: 20060626
